FAERS Safety Report 25126242 (Version 1)
Quarter: 2025Q1

REPORT INFORMATION
  Report Type: Spontaneous
  Country: US (occurrence: US)
  Receive Date: 20250326
  Receipt Date: 20250326
  Transmission Date: 20250409
  Serious: Yes (Other)
  Sender: ALEXION PHARMACEUTICALS
  Company Number: US-AstraZeneca-CH-00831487A

PATIENT
  Age: 24 Year

DRUGS (7)
  1. SOLIRIS [Suspect]
     Active Substance: ECULIZUMAB
     Indication: Atypical haemolytic uraemic syndrome
     Dosage: 1200 MILLIGRAM, Q2W
  2. SOLIRIS [Suspect]
     Active Substance: ECULIZUMAB
     Dosage: 1200 MILLIGRAM, QW
  3. ULTOMIRIS [Suspect]
     Active Substance: RAVULIZUMAB-CWVZ
     Indication: Atypical haemolytic uraemic syndrome
     Dosage: UNK, Q8W
  4. TACROLIMUS [Suspect]
     Active Substance: TACROLIMUS
     Route: 065
  5. SIROLIMUS [Suspect]
     Active Substance: SIROLIMUS
     Route: 065
  6. SIROLIMUS [Suspect]
     Active Substance: SIROLIMUS
     Route: 065
  7. BELATACEPT [Suspect]
     Active Substance: BELATACEPT
     Dosage: UNK, Q2W
     Route: 065

REACTIONS (4)
  - Transplant rejection [Unknown]
  - Atypical haemolytic uraemic syndrome [Not Recovered/Not Resolved]
  - Thrombotic microangiopathy [Unknown]
  - Drug ineffective [Unknown]
